FAERS Safety Report 6964609 (Version 2)
Quarter: 2012Q4

REPORT INFORMATION
  Report Type: 
  Country: US (occurrence: US)
  Receive Date: 20090409
  Receipt Date: 20121213
  Transmission Date: 20130627
  Serious: Yes (Other)
  Sender: FDA-Public Use
  Company Number: US-BAYER-200912992NA

PATIENT
  Sex: Male

DRUGS (1)
  1. TRASYLOL [Suspect]
     Indication: PRODUCT USED FOR UNKNOWN INDICATION
     Dates: start: 20060207

REACTIONS (9)
  - Renal failure [None]
  - Renal impairment [None]
  - Injury [Unknown]
  - Emotional distress [None]
  - Stress [None]
  - Anxiety [None]
  - Fear [None]
  - Pain [None]
  - Anxiety [None]
